FAERS Safety Report 6109429-7 (Version None)
Quarter: 2009Q1

REPORT INFORMATION
  Report Type: 
  Country: None (occurrence: None)
  Receive Date: 20090310
  Receipt Date: 20090306
  Transmission Date: 20090719
  Serious: Yes (Death)
  Sender: FDA-Public Use
  Company Number: B0563648A

PATIENT
  Age: 67 Year
  Sex: Female
  Weight: 35 kg

DRUGS (1)
  1. ARIXTRA [Suspect]
     Indication: THROMBOSIS PROPHYLAXIS
     Dosage: 1.5MG PER DAY
     Route: 058
     Dates: start: 20090225, end: 20090226

REACTIONS (3)
  - HAEMORRHAGE [None]
  - HAEMORRHAGIC ASCITES [None]
  - PULMONARY EMBOLISM [None]
